FAERS Safety Report 13536831 (Version 1)
Quarter: 2017Q2

REPORT INFORMATION
  Report Type: Spontaneous
  Country: US (occurrence: US)
  Receive Date: 20170511
  Receipt Date: 20170511
  Transmission Date: 20170830
  Serious: Yes (Other)
  Sender: FDA-Public Use
  Company Number: US-NOVOPROD-544129

PATIENT
  Age: 46 Year
  Sex: Female
  Weight: 122.45 kg

DRUGS (1)
  1. NOVOLIN 70/30 [Suspect]
     Active Substance: INSULIN HUMAN
     Indication: TYPE 2 DIABETES MELLITUS
     Dosage: 45 U IN MORNING AND 45 U IN EVENING
     Route: 058
     Dates: end: 201704

REACTIONS (6)
  - Sinus headache [Recovered/Resolved]
  - Glycosylated haemoglobin increased [Recovered/Resolved]
  - Diabetic retinopathy [Unknown]
  - Blood pressure increased [Recovered/Resolved]
  - Blood glucose increased [Recovered/Resolved]
  - Drug ineffective [Recovered/Resolved]
